FAERS Safety Report 5690333-3 (Version None)
Quarter: 2008Q2

REPORT INFORMATION
  Report Type: 
  Country: None (occurrence: None)
  Receive Date: 20080401
  Receipt Date: 20080319
  Transmission Date: 20081010
  Serious: Yes (Hospitalization)
  Sender: FDA-Public Use
  Company Number: AU-AMGEN-QUU256178

PATIENT
  Sex: Male
  Weight: 82 kg

DRUGS (7)
  1. NEULASTA [Suspect]
     Indication: CHEMOTHERAPY
     Route: 058
     Dates: start: 20070819
  2. CISPLATIN [Suspect]
     Dates: start: 20070813
  3. BLEOMYCIN [Suspect]
     Dates: start: 20070813
  4. RITONAVIR [Suspect]
  5. ATAZANAVIR SULFATE [Suspect]
  6. KIVEXA [Suspect]
  7. ETOPOSIDE [Suspect]
     Dates: start: 20070813

REACTIONS (1)
  - FEBRILE NEUTROPENIA [None]
